FAERS Safety Report 8023305-4 (Version None)
Quarter: 2012Q1

REPORT INFORMATION
  Report Type: 
  Country: None (occurrence: None)
  Receive Date: 20120104
  Receipt Date: 20111227
  Transmission Date: 20120608
  Serious: Yes (Disabling)
  Sender: FDA-Public Use
  Company Number: NL-BAYER-200312396GDS

PATIENT
  Age: 56 Year
  Sex: Male

DRUGS (1)
  1. AVELOX [Suspect]
     Indication: SINUSITIS
     Route: 048
     Dates: start: 20030627, end: 20030702

REACTIONS (10)
  - IRIS TRANSILLUMINATION DEFECT [None]
  - IRIDOCYCLITIS [None]
  - VISUAL ACUITY REDUCED [None]
  - PUPILLARY REFLEX IMPAIRED [None]
  - MYDRIASIS [None]
  - UVEITIS [None]
  - RETINAL DEPIGMENTATION [None]
  - PUPILS UNEQUAL [None]
  - PUPIL FIXED [None]
  - PHOTOPHOBIA [None]
